FAERS Safety Report 5167990-3 (Version None)
Quarter: 2006Q4

REPORT INFORMATION
  Report Type: 
  Country: None (occurrence: None)
  Receive Date: 20061208
  Receipt Date: 20060106
  Transmission Date: 20070319
  Serious: No
  Sender: FDA-Public Use
  Company Number: US-GLAXOSMITHKLINE-A0588186A

PATIENT
  Age: 58 Year
  Sex: Female
  Weight: 58.6 kg

DRUGS (5)
  1. AVANDAMET [Suspect]
     Route: 048
     Dates: start: 20051006, end: 20060104
  2. AMARYL [Concomitant]
     Dosage: 2MG PER DAY
  3. BENICAR [Concomitant]
     Dosage: 20MG PER DAY
  4. ZOLOFT [Concomitant]
     Dosage: 50MG PER DAY
  5. DYAZIDE [Concomitant]
     Dosage: 37.5MG PER DAY

REACTIONS (1)
  - TREMOR [None]
